FAERS Safety Report 13014351 (Version 1)
Quarter: 2016Q4

REPORT INFORMATION
  Report Type: Spontaneous
  Country: US (occurrence: US)
  Receive Date: 20161209
  Receipt Date: 20161209
  Transmission Date: 20170207
  Serious: No
  Sender: FDA-Public Use
  Company Number: US-CHIESI USA INC.-US-2016CHI000197

PATIENT

DRUGS (11)
  1. AQUADEKS                           /07679501/ [Concomitant]
     Indication: CYSTIC FIBROSIS
     Dosage: DF
  2. PROVENTIL [Concomitant]
     Active Substance: ALBUTEROL
     Indication: CYSTIC FIBROSIS
     Dosage: DF
  3. CYPROHEPTADINE. [Concomitant]
     Active Substance: CYPROHEPTADINE
     Indication: CYSTIC FIBROSIS
     Dosage: DF
  4. CLARITHROMYCIN. [Concomitant]
     Active Substance: CLARITHROMYCIN
     Indication: CYSTIC FIBROSIS
     Dosage: DF
  5. BIOTIN [Concomitant]
     Active Substance: BIOTIN
     Indication: CYSTIC FIBROSIS
     Dosage: DF
  6. PULMOZYME [Concomitant]
     Active Substance: DORNASE ALFA
     Indication: CYSTIC FIBROSIS
     Dosage: DF
  7. KETOCONAZOL [Concomitant]
     Active Substance: KETOCONAZOLE
     Indication: CYSTIC FIBROSIS
     Dosage: DF
  8. BETHKIS [Suspect]
     Active Substance: TOBRAMYCIN
     Indication: CYSTIC FIBROSIS
     Dosage: 300 MG, BID
     Route: 055
     Dates: start: 20150812
  9. PANTOPRAZOLE [Concomitant]
     Active Substance: PANTOPRAZOLE SODIUM
     Indication: CYSTIC FIBROSIS
     Dosage: DF
  10. CREON [Concomitant]
     Active Substance: PANCRELIPASE AMYLASE\PANCRELIPASE LIPASE\PANCRELIPASE PROTEASE
     Indication: CYSTIC FIBROSIS
     Dosage: DF
  11. CIPROFLOXACINE                     /00697201/ [Concomitant]
     Active Substance: CIPROFLOXACIN
     Indication: CYSTIC FIBROSIS
     Dosage: DF

REACTIONS (2)
  - Drug dose omission [Unknown]
  - Memory impairment [None]
